FAERS Safety Report 5120815-4 (Version None)
Quarter: 2006Q4

REPORT INFORMATION
  Report Type: 
  Country: None (occurrence: None)
  Receive Date: 20061005
  Receipt Date: 20060925
  Transmission Date: 20070319
  Serious: Yes (Hospitalization)
  Sender: FDA-Public Use
  Company Number: US-JNJFOC-20060905970

PATIENT
  Sex: Female
  Weight: 68.04 kg

DRUGS (9)
  1. FENTANYL TRANSDERMAL SYSTEM [Suspect]
     Route: 062
  2. FENTANYL TRANSDERMAL SYSTEM [Suspect]
     Route: 062
  3. FENTANYL TRANSDERMAL SYSTEM [Suspect]
     Route: 062
  4. FENTANYL TRANSDERMAL SYSTEM [Suspect]
     Route: 062
  5. FENTANYL TRANSDERMAL SYSTEM [Suspect]
     Indication: FIBROMYALGIA
     Route: 062
  6. SYNTHROID [Concomitant]
     Route: 048
  7. NORVASC [Concomitant]
     Route: 065
  8. ATACANOL [Concomitant]
     Route: 048
  9. ACIPHEX [Concomitant]
     Route: 048

REACTIONS (9)
  - ANOREXIA [None]
  - ASTHENIA [None]
  - DRUG INEFFECTIVE [None]
  - FEELING JITTERY [None]
  - GALLBLADDER DISORDER [None]
  - HYPOGLYCAEMIA [None]
  - NAUSEA [None]
  - NEPHROLITHIASIS [None]
  - VITAMIN B12 DEFICIENCY [None]
